FAERS Safety Report 16987067 (Version 1)
Quarter: 2019Q4

REPORT INFORMATION
  Report Type: Spontaneous
  Country: US (occurrence: US)
  Receive Date: 20191102
  Receipt Date: 20191102
  Transmission Date: 20200122
  Serious: No
  Sender: FDA-Public Use
  Company Number: US-ZYDUS-030840

PATIENT
  Age: 64 Year
  Sex: Female

DRUGS (4)
  1. CARVEDILOL/CARVEDILOL HYDROCHLODRIDE [Suspect]
     Active Substance: CARVEDILOL HYDROCHLORIDE
     Indication: CARDIAC FAILURE CONGESTIVE
     Route: 048
     Dates: start: 20181008, end: 20181126
  2. SPIRONOLACTONE. [Concomitant]
     Active Substance: SPIRONOLACTONE
     Indication: CARDIAC FAILURE CONGESTIVE
     Route: 065
  3. VALSARTAN. [Concomitant]
     Active Substance: VALSARTAN
     Indication: CARDIAC FAILURE CONGESTIVE
     Route: 065
  4. DASATINIB. [Concomitant]
     Active Substance: DASATINIB
     Indication: ACUTE LYMPHOCYTIC LEUKAEMIA
     Route: 065

REACTIONS (7)
  - Asthenia [Recovered/Resolved]
  - Hypersomnia [Recovered/Resolved]
  - Influenza like illness [Recovered/Resolved]
  - Rash maculo-papular [Recovered/Resolved]
  - Dyspnoea [Recovered/Resolved]
  - Sluggishness [Recovered/Resolved]
  - Chest pain [Recovered/Resolved]

NARRATIVE: CASE EVENT DATE: 201810
